FAERS Safety Report 15415751 (Version 6)
Quarter: 2021Q4

REPORT INFORMATION
  Report Type: Report from Study
  Country: US (occurrence: US)
  Receive Date: 20180922
  Receipt Date: 20211015
  Transmission Date: 20220303
  Serious: Yes (Other)
  Sender: FDA-Public Use
  Company Number: PHEH2018US038991

PATIENT
  Sex: Female

DRUGS (1)
  1. GLATOPA [Suspect]
     Active Substance: GLATIRAMER ACETATE
     Indication: Product used for unknown indication
     Route: 065

REACTIONS (9)
  - Multiple sclerosis [Unknown]
  - Fatigue [Unknown]
  - Central nervous system lesion [Unknown]
  - Memory impairment [Unknown]
  - Muscular weakness [Unknown]
  - Stress [Unknown]
  - Sinusitis [Unknown]
  - Amnesia [Unknown]
  - Product dose omission issue [Unknown]
